FAERS Safety Report 10486399 (Version 1)
Quarter: 2014Q4

REPORT INFORMATION
  Report Type: Spontaneous
  Country: US (occurrence: JP)
  Receive Date: 20141001
  Receipt Date: 20141001
  Transmission Date: 20150528
  Serious: Yes (Other)
  Sender: FDA-Public Use
  Company Number: 2014SP005631

PATIENT
  Age: 21 Year
  Sex: Female

DRUGS (2)
  1. EXAL 1 [Concomitant]
  2. METHOTREXATE [Suspect]
     Active Substance: METHOTREXATE
     Indication: DESMOID TUMOUR
     Route: 042

REACTIONS (1)
  - Deafness [Unknown]
